FAERS Safety Report 8085483-0 (Version None)
Quarter: 2012Q1

REPORT INFORMATION
  Report Type: 
  Country: None (occurrence: None)
  Receive Date: 20120128
  Receipt Date: 20110411
  Transmission Date: 20120608
  Serious: No
  Sender: FDA-Public Use
  Company Number: US-ABBOTT-11P-163-0704487-00

PATIENT
  Age: 28 Year
  Sex: Female

DRUGS (3)
  1. HUMIRA [Suspect]
     Indication: ANKYLOSING SPONDYLITIS
     Dates: start: 20100601
  2. VICODIN [Suspect]
     Indication: PRODUCT USED FOR UNKNOWN INDICATION
     Dosage: 5/500MG AS NEEDED
  3. IBUPROFEN TABLETS [Suspect]
     Indication: PRODUCT USED FOR UNKNOWN INDICATION

REACTIONS (7)
  - INCORRECT DOSE ADMINISTERED BY DEVICE [None]
  - NASOPHARYNGITIS [None]
  - ARTHRALGIA [None]
  - NASAL CONGESTION [None]
  - SINUS HEADACHE [None]
  - DRUG INEFFECTIVE [None]
  - DEVICE MALFUNCTION [None]
